FAERS Safety Report 4837410-4 (Version None)
Quarter: 2005Q4

REPORT INFORMATION
  Report Type: 
  Country: None (occurrence: None)
  Receive Date: 20051123
  Receipt Date: 20051123
  Transmission Date: 20060501
  Serious: Yes (Hospitalization)
  Sender: FDA-Public Use
  Company Number: None

PATIENT
  Age: 86 Year
  Sex: Male
  Weight: 89 kg

DRUGS (1)
  1. VANCOMYCIN [Suspect]
     Indication: WOUND INFECTION
     Dosage: 1 GM IV Q 24 HRS
     Route: 042
     Dates: start: 20050511, end: 20050611

REACTIONS (1)
  - DIARRHOEA [None]
